FAERS Safety Report 24125071 (Version 1)
Quarter: 2024Q3

REPORT INFORMATION
  Report Type: Report from Study
  Country: US (occurrence: US)
  Receive Date: 20240723
  Receipt Date: 20240723
  Transmission Date: 20241016
  Serious: Yes (Other)
  Sender: ROCHE
  Company Number: US-ROCHE-10000030164

PATIENT

DRUGS (3)
  1. ATEZOLIZUMAB [Suspect]
     Active Substance: ATEZOLIZUMAB
     Indication: Non-small cell lung cancer metastatic
     Route: 065
  2. PEMBROLIZUMAB [Suspect]
     Active Substance: PEMBROLIZUMAB
     Indication: Non-small cell lung cancer metastatic
     Route: 065
  3. NIVOLUMAB [Suspect]
     Active Substance: NIVOLUMAB
     Indication: Non-small cell lung cancer metastatic
     Route: 065

REACTIONS (16)
  - Acute kidney injury [Unknown]
  - Colitis [Unknown]
  - Skin reaction [Unknown]
  - Pneumonitis [Unknown]
  - Hepatitis [Unknown]
  - Nephritis [Unknown]
  - Thyroiditis [Unknown]
  - Adrenal insufficiency [Unknown]
  - Myositis [Unknown]
  - Arthritis [Unknown]
  - Renal failure [Unknown]
  - Infection [Unknown]
  - Chest pain [Unknown]
  - Fatigue [Unknown]
  - Drug resistance mutation [Unknown]
  - Mucosal inflammation [Unknown]
